FAERS Safety Report 14259157 (Version 1)
Quarter: 2017Q4

REPORT INFORMATION
  Report Type: Spontaneous
  Country: US (occurrence: US)
  Receive Date: 20171207
  Receipt Date: 20171207
  Transmission Date: 20180321
  Serious: Yes (Hospitalization)
  Sender: FDA-Public Use
  Company Number: US-BAYER-2017-235674

PATIENT
  Age: 61 Year
  Sex: Female

DRUGS (2)
  1. ACETYLSALICYLIC ACID({=100 MG) [Suspect]
     Active Substance: ASPIRIN
     Indication: ACUTE CORONARY SYNDROME
     Dosage: UNK
  2. PRASUGREL. [Suspect]
     Active Substance: PRASUGREL
     Indication: ACUTE CORONARY SYNDROME
     Dosage: UNK

REACTIONS (1)
  - Haemothorax [Recovered/Resolved]
